FAERS Safety Report 8140668-X (Version None)
Quarter: 2012Q1

REPORT INFORMATION
  Report Type: 
  Country: None (occurrence: None)
  Receive Date: 20120216
  Receipt Date: 20120207
  Transmission Date: 20120608
  Serious: No
  Sender: FDA-Public Use
  Company Number: AU-JNJFOC-20120204682

PATIENT
  Sex: Female

DRUGS (15)
  1. MAXOLON [Concomitant]
     Route: 065
     Dates: start: 20120131
  2. MOVIPREP [Concomitant]
     Route: 065
  3. LEXAPRO [Concomitant]
     Indication: AGITATION
     Route: 048
  4. METOCLOPRAMIDE [Concomitant]
     Indication: NAUSEA
     Route: 065
  5. SEREPAX [Concomitant]
     Indication: EMOTIONAL DISTRESS
     Route: 048
     Dates: start: 20120123
  6. DURAGESIC-100 [Suspect]
     Indication: ANALGESIC THERAPY
     Route: 062
     Dates: start: 20100316
  7. PRAMIN [Concomitant]
     Route: 048
     Dates: start: 20110215
  8. DULCOLAX [Concomitant]
     Indication: CONSTIPATION
     Route: 065
     Dates: start: 20111103
  9. MORPHINE SULFATE [Concomitant]
     Indication: ANALGESIC THERAPY
     Dosage: 2.5- 5 MG
     Route: 065
  10. NITROLINGUAL [Concomitant]
     Indication: CHEST PAIN
     Dosage: 1-2 PRN MAX 5 DOSE/DAY
     Route: 060
     Dates: start: 20110215
  11. METOCLOPRAMIDE [Concomitant]
     Indication: ACUTE MYOCARDIAL INFARCTION
     Route: 065
  12. SEREPAX [Concomitant]
     Indication: AGITATION
     Route: 048
     Dates: start: 20120123
  13. ACETAMINOPHEN [Concomitant]
     Indication: ANALGESIC THERAPY
     Route: 048
     Dates: end: 20120131
  14. MOVIPREP [Concomitant]
     Indication: CONSTIPATION
     Route: 065
  15. TEARS NATURALE [Concomitant]
     Route: 047
     Dates: start: 20090813

REACTIONS (1)
  - DRUG DISPENSING ERROR [None]
